FAERS Safety Report 22589485 (Version 1)
Quarter: 2023Q2

REPORT INFORMATION
  Report Type: Spontaneous
  Country: CN (occurrence: CN)
  Receive Date: 20230612
  Receipt Date: 20230612
  Transmission Date: 20230722
  Serious: Yes (Hospitalization, Other)
  Sender: FDA-Public Use
  Company Number: CN-MEITHEAL-2023MPLIT00072

PATIENT
  Age: 49 Year
  Sex: Female

DRUGS (7)
  1. DOCETAXEL [Suspect]
     Active Substance: DOCETAXEL
     Indication: Adenocarcinoma gastric
     Route: 065
     Dates: start: 20200430
  2. DOCETAXEL [Suspect]
     Active Substance: DOCETAXEL
     Indication: Thrombocytopenia
     Dosage: FIRST CYCLE
     Route: 042
     Dates: start: 202112
  3. DOCETAXEL [Suspect]
     Active Substance: DOCETAXEL
     Dosage: 2 AND 3 WERE PERFORMED IN JANUARY AND FEBRUARY 2022
     Route: 042
  4. FLUOROURACIL [Suspect]
     Active Substance: FLUOROURACIL
     Indication: Adenocarcinoma gastric
     Dates: start: 20200430
  5. OXALIPLATIN [Suspect]
     Active Substance: OXALIPLATIN
     Indication: Adenocarcinoma gastric
     Dates: start: 20200430
  6. LEVOLEUCOVORIN CALCIUM [Suspect]
     Active Substance: LEVOLEUCOVORIN CALCIUM
     Route: 065
     Dates: start: 20200430
  7. CISPLATIN [Suspect]
     Active Substance: CISPLATIN
     Indication: Thrombocytopenia
     Dosage: 80 MG/60 MG
     Route: 033

REACTIONS (1)
  - Posterior reversible encephalopathy syndrome [Recovering/Resolving]
